FAERS Safety Report 22379417 (Version 1)
Quarter: 2023Q2

REPORT INFORMATION
  Report Type: Spontaneous
  Country: CN (occurrence: CN)
  Receive Date: 20230529
  Receipt Date: 20230529
  Transmission Date: 20230722
  Serious: Yes (Other)
  Sender: FDA-Public Use
  Company Number: CN-PFIZER INC-PV202300093125

PATIENT
  Age: 32 Year
  Sex: Female

DRUGS (1)
  1. CARBOPROST TROMETHAMINE [Suspect]
     Active Substance: CARBOPROST TROMETHAMINE
     Indication: Uterine hypotonus
     Dosage: 0.25 MG, 1X/DAY
     Route: 030
     Dates: start: 20230512, end: 20230512

REACTIONS (3)
  - Gastrointestinal disorder [Recovering/Resolving]
  - Nausea [Recovering/Resolving]
  - Vomiting [Recovering/Resolving]

NARRATIVE: CASE EVENT DATE: 20230512
